FAERS Safety Report 9935579 (Version 2)
Quarter: 2014Q2

REPORT INFORMATION
  Report Type: Spontaneous
  Country: JP (occurrence: JP)
  Receive Date: 20140228
  Receipt Date: 20140411
  Transmission Date: 20141212
  Serious: Yes (Death)
  Sender: FDA-Public Use
  Company Number: JP-BAXTER-2014BAX008876

PATIENT
  Age: 57 Year
  Sex: Male

DRUGS (4)
  1. GAMMAGARD FOR INJECTION 2.5G [Suspect]
     Indication: AMYOTROPHIC LATERAL SCLEROSIS
     Route: 042
  2. METHYLPREDNISOLONE [Suspect]
     Indication: AMYOTROPHIC LATERAL SCLEROSIS
     Route: 065
  3. CICLOSPORIN [Suspect]
     Indication: AMYOTROPHIC LATERAL SCLEROSIS
     Route: 065
  4. RITUXIMAB [Suspect]
     Indication: AMYOTROPHIC LATERAL SCLEROSIS
     Route: 065

REACTIONS (1)
  - Respiratory failure [Fatal]
